FAERS Safety Report 5086645-7 (Version None)
Quarter: 2006Q3

REPORT INFORMATION
  Report Type: 
  Country: None (occurrence: None)
  Receive Date: 20060823
  Receipt Date: 20060814
  Transmission Date: 20061208
  Serious: Yes (Other)
  Sender: FDA-Public Use
  Company Number: US-JNJFOC-20060803453

PATIENT
  Sex: Female
  Weight: 77.57 kg

DRUGS (6)
  1. REMICADE [Suspect]
  2. REMICADE [Suspect]
     Indication: PSORIATIC ARTHROPATHY
  3. SYNTHROID [Concomitant]
  4. BROMOCRIPTINE MESYLATE [Concomitant]
  5. ALPRAZOLAM [Concomitant]
     Dosage: DOSE 1/2 TABLET
  6. AMBIEN [Concomitant]

REACTIONS (1)
  - PITUITARY TUMOUR [None]
